FAERS Safety Report 15322374 (Version 3)
Quarter: 2019Q1

REPORT INFORMATION
  Report Type: Spontaneous
  Country: SI (occurrence: SI)
  Receive Date: 20180827
  Receipt Date: 20190301
  Transmission Date: 20190417
  Serious: Yes (Hospitalization, Other)
  Sender: FDA-Public Use
  Company Number: SI-SA-2018SA198436

PATIENT
  Age: 54 Year
  Sex: Male

DRUGS (20)
  1. LORATADINE. [Concomitant]
     Active Substance: LORATADINE
     Indication: PREMEDICATION
     Dosage: 40 MG
  2. TAMSULOSIN [Concomitant]
     Active Substance: TAMSULOSIN
     Dosage: 0.4 MG, QD
  3. SODIUM BICARBONATE. [Concomitant]
     Active Substance: SODIUM BICARBONATE
     Dosage: 500 MG, BID
     Dates: start: 200505
  4. ALOPURINOL [Concomitant]
     Active Substance: ALLOPURINOL
     Dosage: 400 MG, QD
  5. PANTOPRAZOLE [Concomitant]
     Active Substance: PANTOPRAZOLE
     Dosage: 40 MG, QD
  6. METHOXY POLYETHYLENE GLYCOL-EPOETIN BETA. [Concomitant]
     Active Substance: METHOXY POLYETHYLENE GLYCOL-EPOETIN BETA
  7. POTASSIUM CITRATE. [Concomitant]
     Active Substance: POTASSIUM CITRATE
     Dosage: 247 G
  8. ATORVASTATINE [ATORVASTATIN] [Concomitant]
     Active Substance: ATORVASTATIN
     Dosage: 40 MG, QD
  9. PARICALCITOL. [Concomitant]
     Active Substance: PARICALCITOL
     Dosage: 2 MG, QD
  10. ACETYLSALICYLIC ACID [Concomitant]
     Active Substance: ASPIRIN
     Dosage: 400 MG, QD
     Dates: start: 201803
  11. PARACETAMOL [Concomitant]
     Active Substance: ACETAMINOPHEN
     Indication: PREMEDICATION
     Dosage: 4000 MG
  12. LEVOFLOXACINE [LEVOFLOXACIN] [Concomitant]
     Active Substance: LEVOFLOXACIN
     Dosage: 500 MG, 48 HOURS
     Dates: start: 201807
  13. POTASSIUM HYDROGEN CARBONATE [Concomitant]
     Dosage: 2 G, QD
  14. CITRIC ACID [Concomitant]
     Active Substance: CITRIC ACID MONOHYDRATE
     Dosage: 2087 G, QD
  15. SALMETEROL [Concomitant]
     Active Substance: SALMETEROL
     Indication: ASTHMA
     Dosage: 50 MG, UNK
     Dates: start: 2003
  16. SIMETHICONE (DIMETHICONE) [Concomitant]
     Active Substance: DIMETHICONE
     Dosage: 30 GTT DROPS, EVERY 6 HOURS
  17. FABRAZYME [Suspect]
     Active Substance: AGALSIDASE BETA
     Indication: FABRY^S DISEASE
     Dosage: 80 MG, QOW
     Route: 041
     Dates: start: 20031120, end: 20180712
  18. DALTEPARIN [Concomitant]
     Active Substance: DALTEPARIN
     Indication: THROMBOSIS
     Dosage: 5000 MG, QD
     Route: 058
  19. FLUTICASONE. [Concomitant]
     Active Substance: FLUTICASONE
     Indication: ASTHMA
     Dosage: 500 MG, UNK
     Dates: start: 2003
  20. LANTHANUM CARBONATE. [Concomitant]
     Active Substance: LANTHANUM CARBONATE
     Dosage: 500 MG
     Dates: start: 2005

REACTIONS (6)
  - Abdominal pain [Recovered/Resolved]
  - Postoperative thoracic procedure complication [Recovered/Resolved]
  - Coronary revascularisation [Unknown]
  - Pyrexia [Recovered/Resolved]
  - Inflammation of wound [Recovered/Resolved]
  - Unevaluable event [Unknown]

NARRATIVE: CASE EVENT DATE: 20180422
